FAERS Safety Report 6897742-5 (Version None)
Quarter: 2010Q3

REPORT INFORMATION
  Report Type: 
  Country: None (occurrence: None)
  Receive Date: 20100802
  Receipt Date: 20070718
  Transmission Date: 20110219
  Serious: No
  Sender: FDA-Public Use
  Company Number: US-PFIZER INC-2007058578

PATIENT
  Sex: Female
  Weight: 58.2 kg

DRUGS (5)
  1. LYRICA [Suspect]
     Indication: NEUROPATHY PERIPHERAL
     Dates: start: 20070621
  2. VOLTAREN [Suspect]
     Dates: start: 20070705, end: 20070706
  3. TYLENOL [Suspect]
     Dates: start: 20070706, end: 20070710
  4. LEXAPRO [Concomitant]
  5. LUNESTA [Concomitant]

REACTIONS (3)
  - ABDOMINAL DISTENSION [None]
  - JOINT SWELLING [None]
  - OEDEMA PERIPHERAL [None]
